FAERS Safety Report 7352049-7 (Version None)
Quarter: 2011Q1

REPORT INFORMATION
  Report Type: 
  Country: None (occurrence: None)
  Receive Date: 20110315
  Receipt Date: 20110308
  Transmission Date: 20110831
  Serious: Yes (Death)
  Sender: FDA-Public Use
  Company Number: US-JNJFOC-20110304370

PATIENT
  Age: 23 Year
  Sex: Female

DRUGS (1)
  1. TRAMADOL HCL [Suspect]
     Indication: PRODUCT USED FOR UNKNOWN INDICATION
     Route: 065

REACTIONS (6)
  - COMPLETED SUICIDE [None]
  - EXCORIATION [None]
  - BRAIN OEDEMA [None]
  - PULMONARY CONGESTION [None]
  - OVERDOSE [None]
  - CONTUSION [None]
